FAERS Safety Report 5078689-6 (Version None)
Quarter: 2006Q3

REPORT INFORMATION
  Report Type: 
  Country: None (occurrence: None)
  Receive Date: 20060720
  Receipt Date: 20060525
  Transmission Date: 20061208
  Serious: Yes (Other)
  Sender: FDA-Public Use
  Company Number: HQWYE620901JUN06

PATIENT
  Age: 74 Year
  Sex: Female
  Weight: 64.47 kg

DRUGS (8)
  1. ADVIL PM [Suspect]
     Indication: PAIN
     Dosage: 2 CAPLETS AT BEDTIME ORAL
     Route: 048
     Dates: start: 20060523, end: 20060524
  2. ADVIL PM [Suspect]
     Indication: SLEEP DISORDER
     Dosage: 2 CAPLETS AT BEDTIME ORAL
     Route: 048
     Dates: start: 20060523, end: 20060524
  3. GLUCOSAMINE W/ CHONDROITIN SULFATES (ASCORBIC ACID/ CHONDROITIN SULFAT [Concomitant]
  4. CALCIUM WITH VITAMIN D (CALCIUM PHOSPHATE/CALCIUM SODIUM LACTATE/ERGOC [Concomitant]
  5. FISH (FISH OIL) [Concomitant]
  6. ONE-A-DAY (ASCORBIC ACID/CYANOCOBALAMIN/ERGOCALCIFEROL/NICOTINAMIDE/PY [Concomitant]
  7. LEVOTHYROXINE SODIUM [Concomitant]
  8. ASCORBIC ACID [Concomitant]

REACTIONS (1)
  - FEELING JITTERY [None]
